FAERS Safety Report 4938518-5 (Version None)
Quarter: 2006Q1

REPORT INFORMATION
  Report Type: 
  Country: None (occurrence: None)
  Receive Date: 20060302
  Receipt Date: 20060222
  Transmission Date: 20060701
  Serious: Yes (Hospitalization)
  Sender: FDA-Public Use
  Company Number: 2006026604

PATIENT
  Age: 87 Year
  Sex: Male

DRUGS (8)
  1. LYRICA [Suspect]
     Indication: ILL-DEFINED DISORDER
     Dosage: 25 MG (25 MG, 1 IN 1 D), ORAL
     Route: 048
  2. ASPIRIN [Concomitant]
  3. CARVEDILOL [Concomitant]
  4. LANSOPRAZOLE [Concomitant]
  5. ALLOPURINOL [Concomitant]
  6. BUMETANIDE [Concomitant]
  7. SPIRONOLACTONE [Concomitant]
  8. PROCHLORPERAZINE MALEATE [Concomitant]

REACTIONS (1)
  - EPISTAXIS [None]
